FAERS Safety Report 7370688-4 (Version None)
Quarter: 2011Q1

REPORT INFORMATION
  Report Type: 
  Country: None (occurrence: None)
  Receive Date: 20110323
  Receipt Date: 20110314
  Transmission Date: 20110831
  Serious: Yes (Hospitalization, Other)
  Sender: FDA-Public Use
  Company Number: US-MYLANLABS-2011S1003907

PATIENT
  Age: 62 Year
  Sex: Female

DRUGS (12)
  1. VITAMIN B-12 [Concomitant]
  2. TEMAZEPAM [Suspect]
     Indication: INSOMNIA
  3. CLONAZEPAM [Suspect]
     Indication: ANXIETY
     Dates: start: 20090201
  4. SIMVASTATIN [Concomitant]
  5. CALCIUM [Concomitant]
  6. LEVOTHYROXINE SODIUM [Concomitant]
  7. TRIAMTERENE [Concomitant]
  8. VITAMIN D [Concomitant]
  9. LISINOPRIL [Concomitant]
  10. FISH OIL [Concomitant]
  11. EVISTA [Concomitant]
  12. ASPIRIN [Concomitant]

REACTIONS (3)
  - DYSPNOEA [None]
  - CHEST DISCOMFORT [None]
  - TREMOR [None]
